FAERS Safety Report 6152369-8 (Version None)
Quarter: 2009Q2

REPORT INFORMATION
  Report Type: 
  Country: None (occurrence: None)
  Receive Date: 20090413
  Receipt Date: 20071029
  Transmission Date: 20091009
  Serious: Yes (Hospitalization)
  Sender: FDA-Public Use
  Company Number: US-ASTRAZENECA-2007UW25103

PATIENT
  Age: 37 Year
  Sex: Female
  Weight: 102.5 kg

DRUGS (35)
  1. SEROQUEL [Suspect]
     Indication: DEPRESSION
     Route: 048
     Dates: start: 19980101, end: 20050101
  2. SEROQUEL [Suspect]
     Route: 048
  3. SEROQUEL [Suspect]
     Route: 048
  4. EFFEXOR [Concomitant]
  5. EFFEXOR [Concomitant]
  6. RISPERDAL [Concomitant]
  7. RISPERDAL [Concomitant]
  8. WELLBUTRIN [Concomitant]
  9. WELLBUTRIN [Concomitant]
  10. ALBUTEROL SULFATE [Concomitant]
  11. ALBUTEROL SULFATE [Concomitant]
  12. TRAZODONE HCL [Concomitant]
  13. TRAZODONE HCL [Concomitant]
  14. BUSPAR [Concomitant]
  15. BUSPAR [Concomitant]
  16. MOTRIN [Concomitant]
  17. MOTRIN [Concomitant]
  18. ABILIFY [Concomitant]
  19. ABILIFY [Concomitant]
  20. DEPAKOTE [Concomitant]
  21. DEPAKOTE [Concomitant]
  22. ATIVAN [Concomitant]
  23. ATIVAN [Concomitant]
  24. LEVAQUIN [Concomitant]
  25. LEVAQUIN [Concomitant]
  26. ZANTAC [Concomitant]
  27. ZANTAC [Concomitant]
  28. PREDNISONE [Concomitant]
  29. PREDNISONE [Concomitant]
  30. SINGULAIR [Concomitant]
  31. SINGULAIR [Concomitant]
  32. DOXYCYCLINE [Concomitant]
  33. DOXYCYCLINE [Concomitant]
  34. ZINACEF [Concomitant]
  35. ZINACEF [Concomitant]

REACTIONS (1)
  - DIABETES MELLITUS [None]
